FAERS Safety Report 21926552 (Version 1)
Quarter: 2023Q1

REPORT INFORMATION
  Report Type: Spontaneous
  Country: US (occurrence: US)
  Receive Date: 20230130
  Receipt Date: 20230130
  Transmission Date: 20230417
  Serious: No
  Sender: FDA-Public Use
  Company Number: US-ABBVIE-4253153

PATIENT
  Age: 67 Year
  Sex: Male
  Weight: 93 kg

DRUGS (3)
  1. RINVOQ [Suspect]
     Active Substance: UPADACITINIB
     Indication: Product used for unknown indication
     Route: 048
     Dates: end: 202212
  2. CIBINQO [Suspect]
     Active Substance: ABROCITINIB
     Indication: Dermatitis atopic
     Dosage: 100 MILLIGRAM AND 50 MILLIGRAM
     Route: 048
  3. CIBINQO [Suspect]
     Active Substance: ABROCITINIB
     Indication: Dermatitis atopic
     Dosage: 100 MILLIGRAM AND 50 MILLIGRAM
     Route: 048
     Dates: start: 20221214

REACTIONS (3)
  - Blood pressure increased [Unknown]
  - Fatigue [Unknown]
  - Tension [Unknown]

NARRATIVE: CASE EVENT DATE: 20221201
